FAERS Safety Report 25988401 (Version 1)
Quarter: 2025Q4

REPORT INFORMATION
  Report Type: Report from Study
  Country: US (occurrence: US)
  Receive Date: 20251103
  Receipt Date: 20251103
  Transmission Date: 20260117
  Serious: Yes (Other)
  Sender: ROCHE
  Company Number: US-ROCHE-10000418019

PATIENT
  Age: 75 Year
  Sex: Female

DRUGS (20)
  1. RITUXAN [Suspect]
     Active Substance: RITUXIMAB
     Indication: Pulmonary fibrosis
     Dosage: THEN EVERY 6 MONTHS?10 MG/ML
     Route: 042
  2. CELLCEPT [Suspect]
     Active Substance: MYCOPHENOLATE MOFETIL
     Indication: Product used for unknown indication
     Route: 065
  3. MYFORTIC [Concomitant]
     Active Substance: MYCOPHENOLATE SODIUM
  4. OFEV [Concomitant]
     Active Substance: NINTEDANIB
  5. BENADRYL [Concomitant]
     Active Substance: DIPHENHYDRAMINE HYDROCHLORIDE
  6. SOLU-MEDROL [Concomitant]
     Active Substance: METHYLPREDNISOLONE SODIUM SUCCINATE
  7. TYLENOL [Concomitant]
     Active Substance: ACETAMINOPHEN
  8. OXYGEN [Concomitant]
     Active Substance: OXYGEN
  9. FLECAINIDE [Concomitant]
     Active Substance: FLECAINIDE
  10. FAMOTIDINE [Concomitant]
     Active Substance: FAMOTIDINE
  11. Cal-Citrate [Concomitant]
  12. PANTOPRAZOLE [Concomitant]
     Active Substance: PANTOPRAZOLE
  13. CALCIPOTRIENE [Concomitant]
     Active Substance: CALCIPOTRIENE
  14. MYFORTIC [Concomitant]
     Active Substance: MYCOPHENOLATE SODIUM
  15. ZYRTEC [Concomitant]
     Active Substance: CETIRIZINE HYDROCHLORIDE
  16. SERTRALINE [Concomitant]
     Active Substance: SERTRALINE HYDROCHLORIDE
  17. LEVALBUTEROL [Concomitant]
     Active Substance: LEVALBUTEROL
  18. CLOBETASOL [Concomitant]
     Active Substance: CLOBETASOL
  19. CLOBETASOL [Concomitant]
     Active Substance: CLOBETASOL
  20. ROSUVASTATIN [Concomitant]
     Active Substance: ROSUVASTATIN

REACTIONS (15)
  - Dry eye [Unknown]
  - Joint stiffness [Unknown]
  - Drug ineffective [Unknown]
  - Off label use [Unknown]
  - Chills [Unknown]
  - Fatigue [Unknown]
  - Dysphonia [Unknown]
  - Sinusitis [Unknown]
  - Tinnitus [Unknown]
  - Ocular hyperaemia [Unknown]
  - Abdominal pain [Unknown]
  - Pruritus [Unknown]
  - Pulmonary fibrosis [Unknown]
  - Skin hypertrophy [Unknown]
  - Acrosclerosis [Unknown]
